FAERS Safety Report 6735451-3 (Version None)
Quarter: 2010Q2

REPORT INFORMATION
  Report Type: 
  Country: None (occurrence: None)
  Receive Date: 20100521
  Receipt Date: 20100517
  Transmission Date: 20101027
  Serious: Yes (Death, Other)
  Sender: FDA-Public Use
  Company Number: PHHY2010JP31402

PATIENT
  Age: 4 Year
  Weight: 14 kg

DRUGS (3)
  1. IMATINIB [Suspect]
     Indication: ACUTE LYMPHOCYTIC LEUKAEMIA
  2. HYPER-CVAD [Suspect]
  3. BUSULFEX [Concomitant]
     Dosage: 1.2 MG/KG, UNK

REACTIONS (3)
  - HEPATIC FAILURE [None]
  - STEM CELL TRANSPLANT [None]
  - VENOOCCLUSIVE LIVER DISEASE [None]
